FAERS Safety Report 14657134 (Version 2)
Quarter: 2018Q4

REPORT INFORMATION
  Report Type: Spontaneous
  Country: PL (occurrence: PL)
  Receive Date: 20180319
  Receipt Date: 20181025
  Transmission Date: 20190204
  Serious: Yes (Death, Hospitalization)
  Sender: FDA-Public Use
  Company Number: PL-PFIZER INC-2018106648

PATIENT
  Age: 52 Year
  Sex: Female

DRUGS (6)
  1. LEVOFLOXACIN. [Suspect]
     Active Substance: LEVOFLOXACIN
     Indication: PNEUMONIA STAPHYLOCOCCAL
     Dosage: 500 MG, 2X/DAY
     Route: 042
  2. COLISTIN [Suspect]
     Active Substance: COLISTIN
     Indication: KLEBSIELLA INFECTION
     Dosage: 4X1 MILLION UNITS IN NEBULIZATION
     Dates: start: 20160313
  3. VANCOMYCIN [Suspect]
     Active Substance: VANCOMYCIN
     Indication: PNEUMONIA STAPHYLOCOCCAL
     Dosage: 2 G, 1X/DAY
     Route: 042
  4. COLISTIN [Suspect]
     Active Substance: COLISTIN
     Dosage: 4X2 MILLION IV UNITS
     Route: 042
     Dates: start: 20160317
  5. RIFAMPICIN [Suspect]
     Active Substance: RIFAMPIN
     Indication: KLEBSIELLA INFECTION
     Dosage: 600 MG, 2X/DAY
     Route: 048
     Dates: start: 20160317
  6. MEROPENEM. [Suspect]
     Active Substance: MEROPENEM
     Indication: PNEUMONIA STAPHYLOCOCCAL
     Dosage: 3 G, DAILY
     Route: 042

REACTIONS (4)
  - Drug ineffective [Fatal]
  - Anuria [Fatal]
  - Renal failure [Fatal]
  - Disease progression [Fatal]

NARRATIVE: CASE EVENT DATE: 20160317
